FAERS Safety Report 11805773 (Version 2)
Quarter: 2015Q4

REPORT INFORMATION
  Report Type: Spontaneous
  Country: IT (occurrence: IT)
  Receive Date: 20151207
  Receipt Date: 20151210
  Transmission Date: 20160305
  Serious: Yes (Other)
  Sender: FDA-Public Use
  Company Number: IT-ACCORD-035403

PATIENT
  Age: 59 Year
  Sex: Male
  Weight: 90 kg

DRUGS (8)
  1. ZOLOFT [Concomitant]
     Active Substance: SERTRALINE HYDROCHLORIDE
     Route: 048
  2. FLUOROURACIL. [Suspect]
     Active Substance: FLUOROURACIL
     Indication: METASTASES TO LUNG
     Dosage: ALSO RECEIVED INTRAVENOUS INFUSION AT THE DOSE OF 4800 MG CYCLICAL FROM 19-DEC-2014 TO 22-MAY-2015.
     Route: 040
     Dates: start: 20141219
  3. CARDIOASPIRIN [Concomitant]
     Active Substance: ASPIRIN
     Route: 048
  4. IRINOTECAN [Suspect]
     Active Substance: IRINOTECAN
     Indication: METASTASES TO LUNG
     Route: 042
     Dates: start: 20141219
  5. SIMVASTATIN. [Concomitant]
     Active Substance: SIMVASTATIN
     Indication: METABOLIC SYNDROME
     Route: 048
  6. AVASTIN [Suspect]
     Active Substance: BEVACIZUMAB
     Indication: METASTASES TO LUNG
     Route: 042
     Dates: start: 20141219
  7. ZYLORIC [Concomitant]
     Active Substance: ALLOPURINOL
     Indication: CONGENITAL CYSTIC KIDNEY DISEASE
     Route: 048
  8. PRITOR [Concomitant]
     Active Substance: TELMISARTAN
     Indication: HYPERTENSION
     Dosage: STRENGTH:80 MG
     Route: 048

REACTIONS (5)
  - Hypertransaminasaemia [Unknown]
  - Flatulence [Recovering/Resolving]
  - Diarrhoea [Recovering/Resolving]
  - Hypertriglyceridaemia [Unknown]
  - Blood pressure increased [Recovering/Resolving]

NARRATIVE: CASE EVENT DATE: 20150313
